FAERS Safety Report 7827538-9 (Version None)
Quarter: 2011Q4

REPORT INFORMATION
  Report Type: 
  Country: None (occurrence: None)
  Receive Date: 20111020
  Receipt Date: 20111014
  Transmission Date: 20120403
  Serious: Yes (Hospitalization)
  Sender: FDA-Public Use
  Company Number: PHEH2011US00808

PATIENT
  Sex: Male

DRUGS (2)
  1. EXJADE [Suspect]
     Indication: SICKLE CELL ANAEMIA
     Dosage: 2500 MG, QD
     Route: 048
     Dates: start: 20110105, end: 20110629
  2. EXJADE [Suspect]
     Dosage: UNK UKN, UNK
     Route: 048

REACTIONS (2)
  - SICKLE CELL ANAEMIA WITH CRISIS [None]
  - ARTHRITIS INFECTIVE [None]
